FAERS Safety Report 9132000 (Version 1)
Quarter: 2013Q1

REPORT INFORMATION
  Report Type: Spontaneous
  Country: FI (occurrence: FI)
  Receive Date: 20130301
  Receipt Date: 20130301
  Transmission Date: 20140127
  Serious: Yes (Hospitalization)
  Sender: FDA-Public Use
  Company Number: FI-BRISTOL-MYERS SQUIBB COMPANY-17397332

PATIENT
  Sex: Male

DRUGS (6)
  1. PRAVACHOL [Suspect]
     Indication: BLOOD CHOLESTEROL
  2. SELOKEN ZOC [Suspect]
     Indication: BLOOD CHOLESTEROL
  3. COZAAR [Suspect]
     Indication: BLOOD CHOLESTEROL
  4. LIPITOR [Suspect]
     Indication: BLOOD CHOLESTEROL
  5. ISMOX [Suspect]
     Indication: BLOOD CHOLESTEROL
  6. SIMVASTATIN [Suspect]
     Indication: BLOOD CHOLESTEROL

REACTIONS (4)
  - Heart rate decreased [Recovered/Resolved]
  - Pain in extremity [Recovered/Resolved]
  - Cough [None]
  - Back pain [None]
